FAERS Safety Report 14153223 (Version 7)
Quarter: 2018Q3

REPORT INFORMATION
  Report Type: Report from Study
  Country: CO (occurrence: CO)
  Receive Date: 20171102
  Receipt Date: 20180831
  Transmission Date: 20181010
  Serious: Yes (Other)
  Sender: FDA-Public Use
  Company Number: CO-SA-2017SA210702

PATIENT
  Age: 31 Year
  Sex: Male

DRUGS (1)
  1. ALEMTUZUMAB [Suspect]
     Active Substance: ALEMTUZUMAB
     Indication: MULTIPLE SCLEROSIS
     Dosage: 12 MG,QD
     Route: 041
     Dates: start: 20170925, end: 20170929

REACTIONS (6)
  - Eosinophil count decreased [Not Recovered/Not Resolved]
  - Neutrophil count increased [Recovered/Resolved]
  - Lymphocyte count decreased [Not Recovered/Not Resolved]
  - Leukopenia [Not Recovered/Not Resolved]
  - White blood cell count increased [Recovered/Resolved]
  - Monocyte count decreased [Recovered/Resolved]

NARRATIVE: CASE EVENT DATE: 20171025
